FAERS Safety Report 7888763-4 (Version None)
Quarter: 2011Q4

REPORT INFORMATION
  Report Type: 
  Country: None (occurrence: None)
  Receive Date: 20111103
  Receipt Date: 20111028
  Transmission Date: 20120403
  Serious: Yes (Other)
  Sender: FDA-Public Use
  Company Number: US-SANOFI-AVENTIS-2011SA065967

PATIENT
  Age: 79 Year
  Sex: Female
  Weight: 65 kg

DRUGS (2)
  1. SOLOSTAR [Suspect]
  2. LANTUS [Suspect]
     Dosage: DOSE:40 UNIT(S)
     Route: 058
     Dates: start: 20050101

REACTIONS (5)
  - RENAL CANCER [None]
  - BREAST CANCER [None]
  - BRAIN NEOPLASM MALIGNANT [None]
  - METASTATIC NEOPLASM [None]
  - BONE MARROW TUMOUR CELL INFILTRATION [None]
